FAERS Safety Report 6414352-4 (Version None)
Quarter: 2009Q4

REPORT INFORMATION
  Report Type: 
  Country: None (occurrence: None)
  Receive Date: 20091026
  Receipt Date: 20091019
  Transmission Date: 20100525
  Serious: Yes (Other)
  Sender: FDA-Public Use
  Company Number: GB-NAPPMUNDI-GBR-2009-0005709

PATIENT
  Age: 21 Year
  Sex: Female

DRUGS (2)
  1. OXYCONTIN [Suspect]
     Indication: PAIN
     Dosage: UNK
     Dates: start: 20060101
  2. OXYNORM [Suspect]
     Indication: PAIN

REACTIONS (3)
  - DRUG DEPENDENCE [None]
  - FEELING OF BODY TEMPERATURE CHANGE [None]
  - MUSCULOSKELETAL PAIN [None]
